FAERS Safety Report 7595761-7 (Version None)
Quarter: 2011Q3

REPORT INFORMATION
  Report Type: 
  Country: None (occurrence: None)
  Receive Date: 20110707
  Receipt Date: 20110628
  Transmission Date: 20111222
  Serious: Yes (Hospitalization, Other)
  Sender: FDA-Public Use
  Company Number: JP-GENZYME-THYM-1002571

PATIENT
  Age: 44 Year
  Sex: Female

DRUGS (10)
  1. AZATHIOPRINE [Concomitant]
     Dosage: 0.5 MG/KG, UNK
     Route: 065
  2. TACROLIMUS [Concomitant]
     Indication: IMMUNOSUPPRESSION
     Route: 065
  3. THYMOGLOBULIN [Suspect]
     Indication: PROPHYLAXIS AGAINST TRANSPLANT REJECTION
     Route: 042
  4. CYCLOSPORINE [Concomitant]
     Indication: IMMUNOSUPPRESSION
     Dosage: 350 MG, QD
     Route: 065
  5. PREDNISOLONE [Concomitant]
     Indication: IMMUNOSUPPRESSION
     Dosage: 5 MG, QD
     Route: 065
  6. PREDNISOLONE [Concomitant]
     Dosage: 100 MG, QD
     Route: 065
  7. PREDNISOLONE [Concomitant]
     Dosage: 10 MG, QD
     Route: 065
  8. AZATHIOPRINE [Concomitant]
     Indication: IMMUNOSUPPRESSION
     Dosage: 1.5 MG/KG, UNK
     Route: 065
  9. TACROLIMUS [Concomitant]
     Dosage: 6 MG, QD
     Route: 065
  10. SULFAMETHOPRIM [Concomitant]
     Indication: ANTI-INFECTIVE THERAPY
     Route: 065

REACTIONS (4)
  - INTERSTITIAL LUNG DISEASE [None]
  - ORGANISING PNEUMONIA [None]
  - LUNG TRANSPLANT REJECTION [None]
  - LEUKOCYTOSIS [None]
